FAERS Safety Report 13391847 (Version 1)
Quarter: 2017Q1

REPORT INFORMATION
  Report Type: Spontaneous
  Country: US (occurrence: US)
  Receive Date: 20170331
  Receipt Date: 20170331
  Transmission Date: 20170429
  Serious: No
  Sender: FDA-Public Use
  Company Number: US-MYLANLABS-2016M1016509

PATIENT
  Age: 72 Year
  Sex: Male
  Weight: 59.41 kg

DRUGS (7)
  1. CAL-MAG                            /01226301/ [Concomitant]
     Dosage: UNK
  2. XANAX [Concomitant]
     Active Substance: ALPRAZOLAM
     Indication: ANXIETY
     Dosage: 5 MG, PRN
  3. OMEGA-3                            /01866101/ [Concomitant]
     Active Substance: OMEGA-3 FATTY ACIDS
     Indication: MOOD ALTERED
     Dosage: UNK
  4. VITAMIN D [Concomitant]
     Active Substance: CHOLECALCIFEROL
     Dosage: UNK
  5. LAMICTAL [Concomitant]
     Active Substance: LAMOTRIGINE
     Dosage: UNK
  6. NAMENDA [Concomitant]
     Active Substance: MEMANTINE HYDROCHLORIDE
     Dosage: 10 MG, BID
  7. FENTANYL. [Suspect]
     Active Substance: FENTANYL
     Indication: SCIATICA
     Dosage: 50 ?G, QH CHANGED Q72H
     Route: 062
     Dates: start: 20141101, end: 20160229

REACTIONS (2)
  - Withdrawal syndrome [Recovered/Resolved]
  - Drug ineffective [Recovered/Resolved]

NARRATIVE: CASE EVENT DATE: 201412
